FAERS Safety Report 18002602 (Version 1)
Quarter: 2020Q3

REPORT INFORMATION
  Report Type: Spontaneous
  Country: US (occurrence: US)
  Receive Date: 20200710
  Receipt Date: 20200710
  Transmission Date: 20201103
  Serious: No
  Sender: FDA-Public Use
  Company Number: US-AMGEN-USASP2020109781

PATIENT
  Age: 58 Year
  Sex: Male

DRUGS (3)
  1. FOLFIRI [Concomitant]
     Active Substance: FLUOROURACIL\IRINOTECAN\LEUCOVORIN
     Indication: COLON CANCER STAGE II
     Dosage: UNK
  2. MVASI [Suspect]
     Active Substance: BEVACIZUMAB-AWWB
     Indication: COLON CANCER STAGE III
     Dosage: 500 MILLIGRAM
     Route: 065
     Dates: start: 20200707, end: 20200707
  3. MVASI [Suspect]
     Active Substance: BEVACIZUMAB-AWWB
     Dosage: UNK
     Route: 065

REACTIONS (2)
  - Dyspnoea [Unknown]
  - Chest discomfort [Unknown]

NARRATIVE: CASE EVENT DATE: 20200707
